FAERS Safety Report 15880043 (Version 1)
Quarter: 2019Q1

REPORT INFORMATION
  Report Type: Spontaneous
  Country: US (occurrence: US)
  Receive Date: 20190103
  Receipt Date: 20190103
  Transmission Date: 20190417
  Serious: Yes (Death, Life-Threatening)
  Sender: FDA-Public Use
  Company Number: None

PATIENT
  Age: 20 Year
  Sex: Male

DRUGS (1)
  1. NEULASTA [Suspect]
     Active Substance: PEGFILGRASTIM
     Indication: SOFT TISSUE SARCOMA
     Route: 058
     Dates: start: 201808, end: 201812

REACTIONS (1)
  - Death [None]

NARRATIVE: CASE EVENT DATE: 20181230
